FAERS Safety Report 9289068 (Version 4)
Quarter: 2015Q2

REPORT INFORMATION
  Report Type: Spontaneous
  Country: US (occurrence: US)
  Receive Date: 20130514
  Receipt Date: 20150414
  Transmission Date: 20150821
  Serious: No
  Sender: FDA-Public Use
  Company Number: US-009507513-1305USA008467

PATIENT
  Sex: Male
  Weight: 84.7 kg

DRUGS (3)
  1. PROSCAR [Suspect]
     Active Substance: FINASTERIDE
     Indication: ALOPECIA
     Dosage: 5 MG, QD
     Route: 048
     Dates: start: 20070222, end: 2009
  2. PROPECIA [Suspect]
     Active Substance: FINASTERIDE
     Indication: ALOPECIA
     Dosage: 1 MG, QD
     Route: 048
     Dates: start: 200504, end: 2006
  3. PROPECIA [Suspect]
     Active Substance: FINASTERIDE
     Indication: ANDROGENETIC ALOPECIA

REACTIONS (24)
  - Epicondylitis [Unknown]
  - Libido decreased [Unknown]
  - Drug administration error [Unknown]
  - Anxiety [Unknown]
  - Chest pain [Unknown]
  - Depression [Unknown]
  - Arthralgia [Unknown]
  - Stab wound [Unknown]
  - Pain [Unknown]
  - Nasal congestion [Unknown]
  - Erectile dysfunction [Not Recovered/Not Resolved]
  - Depression [Not Recovered/Not Resolved]
  - Sexual dysfunction [Not Recovered/Not Resolved]
  - Blood testosterone decreased [Unknown]
  - Inflammation [Unknown]
  - Anxiety [Unknown]
  - Wrong technique in drug usage process [Unknown]
  - Skin lesion [Unknown]
  - Inguinal hernia repair [Unknown]
  - Hyperhidrosis [Unknown]
  - Back pain [Unknown]
  - Sexually transmitted disease [Unknown]
  - Pain in extremity [Unknown]
  - Genital lesion [Unknown]

NARRATIVE: CASE EVENT DATE: 2006
